FAERS Safety Report 10884052 (Version 1)
Quarter: 2015Q1

REPORT INFORMATION
  Report Type: Spontaneous
  Country: US (occurrence: None)
  Receive Date: 20150226
  Receipt Date: 20150226
  Transmission Date: 20150721
  Serious: Yes (Hospitalization)
  Sender: FDA-Public Use
  Company Number: None

PATIENT
  Age: 93 Year
  Sex: Female
  Weight: 73.1 kg

DRUGS (1)
  1. SULFAMETHOXAZOLE/TRIMETHOPRIM [Suspect]
     Active Substance: SULFAMETHOXAZOLE\TRIMETHOPRIM
     Indication: URINARY TRACT INFECTION
     Dosage: 1 TAB, BID, PO?
     Route: 048
     Dates: start: 20140416, end: 20140420

REACTIONS (5)
  - Angioedema [None]
  - Stevens-Johnson syndrome [None]
  - Hypersensitivity [None]
  - Infection [None]
  - Sepsis [None]

NARRATIVE: CASE EVENT DATE: 20140423
